FAERS Safety Report 10029304 (Version 3)
Quarter: 2014Q2

REPORT INFORMATION
  Report Type: Spontaneous
  Country: US (occurrence: US)
  Receive Date: 20140321
  Receipt Date: 20140418
  Transmission Date: 20141212
  Serious: Yes (Hospitalization, Other)
  Sender: FDA-Public Use
  Company Number: US-009507513-1403USA008838

PATIENT
  Age: 26 Year
  Sex: Female

DRUGS (1)
  1. NEXPLANON [Suspect]
     Dosage: UNK
     Route: 059
     Dates: start: 201105, end: 20140129

REACTIONS (4)
  - Cyst removal [Unknown]
  - Ovarian cyst [Unknown]
  - Pelvic pain [Unknown]
  - Pelvic pain [Unknown]
